FAERS Safety Report 7069133-8 (Version None)
Quarter: 2010Q4

REPORT INFORMATION
  Report Type: 
  Country: None (occurrence: None)
  Receive Date: 20101028
  Receipt Date: 20101021
  Transmission Date: 20110411
  Serious: Yes (Death, Hospitalization)
  Sender: FDA-Public Use
  Company Number: A0888354A

PATIENT
  Sex: Female

DRUGS (2)
  1. TYKERB [Suspect]
     Indication: BREAST CANCER
     Dosage: 1250MG PER DAY
     Route: 048
     Dates: start: 20081014, end: 20090801
  2. CAPECITABINE [Concomitant]
     Indication: PRODUCT USED FOR UNKNOWN INDICATION
     Dosage: 2GM2 UNKNOWN
     Route: 065

REACTIONS (3)
  - ABDOMINAL PAIN [None]
  - JAUNDICE CHOLESTATIC [None]
  - PANCREATIC CARCINOMA [None]
